FAERS Safety Report 20183005 (Version 1)
Quarter: 2021Q4

REPORT INFORMATION
  Report Type: Report from Study
  Country: GB (occurrence: GB)
  Receive Date: 20211214
  Receipt Date: 20211214
  Transmission Date: 20220303
  Serious: Yes (Other)
  Sender: FDA-Public Use
  Company Number: GB-TAKEDA-2021TUS064018

PATIENT
  Age: 19 Year
  Sex: Male

DRUGS (1)
  1. VEDOLIZUMAB [Suspect]
     Active Substance: VEDOLIZUMAB
     Indication: Crohn^s disease
     Dosage: 108 MILLIGRAM, Q2WEEKS
     Route: 058
     Dates: start: 20210721

REACTIONS (8)
  - Crohn^s disease [Unknown]
  - Injection site pain [Unknown]
  - Abdominal pain upper [Unknown]
  - Tachycardia [Unknown]
  - Flushing [Unknown]
  - Nasal congestion [Unknown]
  - Rash [Unknown]
  - Fatigue [Unknown]
